FAERS Safety Report 13050599 (Version 2)
Quarter: 2016Q4

REPORT INFORMATION
  Report Type: Spontaneous
  Country: US (occurrence: US)
  Receive Date: 20161221
  Receipt Date: 20161222
  Transmission Date: 20170207
  Serious: Yes (Death, Other)
  Sender: FDA-Public Use
  Company Number: US-RELYPSA-RLY2016004461

PATIENT
  Sex: Male

DRUGS (1)
  1. VELTASSA [Suspect]
     Active Substance: PATIROMER
     Indication: HYPERKALAEMIA
     Dosage: 8.4 G, QD
     Route: 065
     Dates: start: 20161012, end: 20161210

REACTIONS (2)
  - Hypersensitivity [Not Recovered/Not Resolved]
  - Hyperkalaemia [Fatal]

NARRATIVE: CASE EVENT DATE: 20161212
